FAERS Safety Report 13713145 (Version 1)
Quarter: 2017Q3

REPORT INFORMATION
  Report Type: Report from Study
  Country: None (occurrence: US)
  Receive Date: 20170704
  Receipt Date: 20170704
  Transmission Date: 20171127
  Serious: Yes (Other)
  Sender: FDA-Public Use
  Company Number: US-ABBVIE-17K-163-1946568-00

PATIENT
  Age: 44 Year
  Sex: Female
  Weight: 104.42 kg

DRUGS (2)
  1. HUMIRA [Suspect]
     Active Substance: ADALIMUMAB
     Route: 058
     Dates: start: 20170529
  2. HUMIRA [Suspect]
     Active Substance: ADALIMUMAB
     Indication: PSORIASIS
     Route: 058
     Dates: start: 201501, end: 201702

REACTIONS (3)
  - Breast cancer female [Recovering/Resolving]
  - Precancerous cells present [Recovered/Resolved]
  - Papilloma [Recovered/Resolved]

NARRATIVE: CASE EVENT DATE: 201703
